FAERS Safety Report 17489075 (Version 1)
Quarter: 2020Q1

REPORT INFORMATION
  Report Type: Spontaneous
  Country: US (occurrence: US)
  Receive Date: 20200303
  Receipt Date: 20200303
  Transmission Date: 20200409
  Serious: Yes (Hospitalization)
  Sender: FDA-Public Use
  Company Number: None

PATIENT
  Age: 63 Year
  Sex: Female

DRUGS (7)
  1. MESALAMINE. [Concomitant]
     Active Substance: MESALAMINE
  2. HUMIRA [Suspect]
     Active Substance: ADALIMUMAB
     Indication: CROHN^S DISEASE
     Dosage: ?          OTHER FREQUENCY:ONE DOSE;?
     Route: 058
     Dates: start: 20200225, end: 20200227
  3. LINZESS [Concomitant]
     Active Substance: LINACLOTIDE
  4. OMEPRAZOLE. [Concomitant]
     Active Substance: OMEPRAZOLE
  5. HUMIRA [Suspect]
     Active Substance: ADALIMUMAB
     Indication: COLITIS ULCERATIVE
     Dosage: ?          OTHER FREQUENCY:ONE DOSE;?
     Route: 058
     Dates: start: 20200225, end: 20200227
  6. PREDNISONE. [Concomitant]
     Active Substance: PREDNISONE
  7. ATENOLOL. [Concomitant]
     Active Substance: ATENOLOL

REACTIONS (2)
  - Transient ischaemic attack [None]
  - Cerebrovascular accident [None]

NARRATIVE: CASE EVENT DATE: 20200227
